FAERS Safety Report 5216766-7 (Version None)
Quarter: 2007Q1

REPORT INFORMATION
  Report Type: 
  Country: None (occurrence: None)
  Receive Date: 20070118
  Receipt Date: 20070103
  Transmission Date: 20070707
  Serious: Yes (Life-Threatening, Hospitalization, Other)
  Sender: FDA-Public Use
  Company Number: 2007RR-05105

PATIENT
  Age: 12 Year
  Sex: Male

DRUGS (5)
  1. DICLOFENAC SODIUM [Suspect]
     Indication: PAIN
  2. MORPHINE [Suspect]
     Indication: PAIN
  3. ACETAMINOPHEN [Suspect]
     Indication: PAIN
  4. ... [Suspect]
  5. .... [Suspect]

REACTIONS (4)
  - DRUG INEFFECTIVE [None]
  - HYPOVOLAEMIA [None]
  - MEGACOLON [None]
  - PALLOR [None]
